FAERS Safety Report 6546053-6 (Version None)
Quarter: 2010Q1

REPORT INFORMATION
  Report Type: 
  Country: None (occurrence: None)
  Receive Date: 20100119
  Receipt Date: 20100104
  Transmission Date: 20100710
  Serious: Yes (Death, Hospitalization)
  Sender: FDA-Public Use
  Company Number: 2009AC000174

PATIENT
  Age: 81 Year
  Sex: Female

DRUGS (19)
  1. DIGOXIN [Suspect]
  2. ECOTRIN [Concomitant]
  3. CARDIZEM [Concomitant]
  4. PEPCID [Concomitant]
  5. VICODIN [Concomitant]
  6. PROVENTIL [Concomitant]
  7. ATROVENT [Concomitant]
  8. COUMADIN [Concomitant]
  9. VALSARTAN [Concomitant]
  10. LASIX [Concomitant]
  11. ATROVENT [Concomitant]
  12. CARDIZEM [Concomitant]
  13. COUMADIN [Concomitant]
  14. DIOVAN [Concomitant]
  15. LASIX [Concomitant]
  16. OXYGEN [Concomitant]
  17. ROCALTROL [Concomitant]
  18. TOPROL-XL [Concomitant]
  19. WARFARIN SODIUM [Concomitant]

REACTIONS (30)
  - ACUTE RESPIRATORY FAILURE [None]
  - ANAEMIA [None]
  - ARTERIOSCLEROSIS [None]
  - ATRIAL FIBRILLATION [None]
  - BENIGN GASTROINTESTINAL NEOPLASM [None]
  - CACHEXIA [None]
  - CARDIAC FAILURE CONGESTIVE [None]
  - CARDIOMEGALY [None]
  - CHRONIC OBSTRUCTIVE PULMONARY DISEASE [None]
  - COAGULATION TEST ABNORMAL [None]
  - CONFUSIONAL STATE [None]
  - CONSTIPATION [None]
  - DYSPNOEA [None]
  - ECONOMIC PROBLEM [None]
  - FACIAL PALSY [None]
  - HYPERTENSION [None]
  - HYPOTENSION [None]
  - MALNUTRITION [None]
  - MULTIPLE INJURIES [None]
  - MYOCARDIAL ISCHAEMIA [None]
  - NEPHROSCLEROSIS [None]
  - PAIN [None]
  - PLEURAL EFFUSION [None]
  - PULMONARY HYPERTENSION [None]
  - RENAL FAILURE ACUTE [None]
  - RENAL FAILURE CHRONIC [None]
  - RESPIRATORY FAILURE [None]
  - SOCIAL PROBLEM [None]
  - SURGERY [None]
  - VASCULAR PSEUDOANEURYSM [None]
